FAERS Safety Report 11175320 (Version 3)
Quarter: 2015Q4

REPORT INFORMATION
  Report Type: Report from Study
  Country: US (occurrence: US)
  Receive Date: 20150609
  Receipt Date: 20151231
  Transmission Date: 20160304
  Serious: Yes (Other)
  Sender: FDA-Public Use
  Company Number: US-ASTRAZENECA-2015SE07593

PATIENT
  Age: 689 Month
  Sex: Female

DRUGS (1)
  1. OLAPARIB [Suspect]
     Active Substance: OLAPARIB
     Indication: OVARIAN CANCER
     Route: 048

REACTIONS (10)
  - Gastrointestinal infection [Unknown]
  - Hyperhidrosis [Unknown]
  - Bone pain [Not Recovered/Not Resolved]
  - Fatigue [Unknown]
  - Diverticulitis [Recovering/Resolving]
  - Intestinal obstruction [Recovering/Resolving]
  - Varicose vein [Unknown]
  - Weight decreased [Recovered/Resolved]
  - Hypoaesthesia [Recovered/Resolved]
  - Nausea [Unknown]

NARRATIVE: CASE EVENT DATE: 201505
